FAERS Safety Report 5319542-X (Version None)
Quarter: 2007Q2

REPORT INFORMATION
  Report Type: 
  Country: None (occurrence: None)
  Receive Date: 20070508
  Receipt Date: 20070427
  Transmission Date: 20071010
  Serious: Yes (Hospitalization, Other)
  Sender: FDA-Public Use
  Company Number: US-ELI_LILLY_AND_COMPANY-US200704006282

PATIENT
  Sex: Female

DRUGS (1)
  1. FORTEO [Suspect]
     Indication: OSTEOPOROSIS
     Dosage: UNK, UNK

REACTIONS (7)
  - ACCIDENTAL NEEDLE STICK [None]
  - BALANCE DISORDER [None]
  - CONTUSION [None]
  - FACE INJURY [None]
  - FALL [None]
  - HEAD INJURY [None]
  - INJECTION SITE INJURY [None]
